FAERS Safety Report 7487608-4 (Version None)
Quarter: 2011Q1

REPORT INFORMATION
  Report Type: 
  Country: None (occurrence: None)
  Receive Date: 20110309
  Receipt Date: 20101218
  Transmission Date: 20110831
  Serious: Yes (Other)
  Sender: FDA-Public Use
  Company Number: 2010SP065520

PATIENT
  Age: 47 Year
  Sex: Female

DRUGS (6)
  1. SAPHRIS [Suspect]
     Indication: AKATHISIA
     Dosage: 5 MG; BID
     Dates: start: 20100101
  2. SAPHRIS [Suspect]
     Indication: AGITATION
     Dosage: 5 MG; BID
     Dates: start: 20100101
  3. DIVALPROEX SODIUM [Concomitant]
  4. CITALOPRAM [Concomitant]
  5. SEROQUEL [Concomitant]
  6. CLONAZEPAM [Concomitant]

REACTIONS (1)
  - CONVULSION [None]
